FAERS Safety Report 6646556-X (Version None)
Quarter: 2010Q1

REPORT INFORMATION
  Report Type: 
  Country: None (occurrence: None)
  Receive Date: 20100323
  Receipt Date: 20100315
  Transmission Date: 20100710
  Serious: Yes (Other)
  Sender: FDA-Public Use
  Company Number: US-JNJCH-2010006764

PATIENT
  Age: 74 Year
  Sex: Male
  Weight: 65.3 kg

DRUGS (2)
  1. ROLAIDS MULTI-SYMPTOM [Suspect]
     Indication: ABDOMINAL DISTENSION
     Dosage: TEXT:1-2 TABLETS ONCE DAILY
     Route: 048
  2. FLOMAX [Concomitant]
     Indication: PROSTATOMEGALY
     Dosage: TEXT:0.4MG DAILY
     Route: 065

REACTIONS (3)
  - DIARRHOEA [None]
  - DIVERTICULUM [None]
  - OFF LABEL USE [None]
